FAERS Safety Report 7209283-6 (Version None)
Quarter: 2011Q1

REPORT INFORMATION
  Report Type: 
  Country: None (occurrence: None)
  Receive Date: 20110104
  Receipt Date: 20101227
  Transmission Date: 20110831
  Serious: Yes (Other)
  Sender: FDA-Public Use
  Company Number: B0691095A

PATIENT
  Age: 45 Year
  Sex: Female

DRUGS (4)
  1. DEPAS [Concomitant]
     Dosage: 2MG PER DAY
     Route: 048
  2. LUVOX [Suspect]
     Dosage: 150MG PER DAY
     Route: 048
  3. PAXIL [Suspect]
     Indication: SOCIAL PHOBIA
     Dosage: 40MG PER DAY
     Route: 048
     Dates: start: 20100101, end: 20101201
  4. ZOLOFT [Suspect]
     Dosage: 100MG PER DAY
     Route: 048

REACTIONS (1)
  - LOSS OF CONSCIOUSNESS [None]
